FAERS Safety Report 25414056 (Version 2)
Quarter: 2025Q3

REPORT INFORMATION
  Report Type: Spontaneous
  Country: US (occurrence: US)
  Receive Date: 20250609
  Receipt Date: 20250909
  Transmission Date: 20251020
  Serious: Yes (Other)
  Sender: BRISTOL-MYERS SQUIBB COMPANY
  Company Number: US-BRISTOL-MYERS SQUIBB COMPANY-16443780

PATIENT
  Age: 33 Year
  Sex: Female

DRUGS (4)
  1. NELVUTAMIG [Suspect]
     Active Substance: NELVUTAMIG
     Indication: Malignant melanoma
     Dosage: ADDITIONAL DOSE:FEB2011.
     Dates: start: 200909
  2. CISPLATIN [Suspect]
     Active Substance: CISPLATIN
     Indication: Malignant melanoma
  3. VINBLASTINE [Suspect]
     Active Substance: VINBLASTINE
     Indication: Malignant melanoma
  4. TEMOZOLOMIDE [Suspect]
     Active Substance: TEMOZOLOMIDE
     Indication: Malignant melanoma

REACTIONS (2)
  - Malignant neoplasm progression [Unknown]
  - Hypothyroidism [Unknown]
